FAERS Safety Report 9343800 (Version 1)
Quarter: 2013Q2

REPORT INFORMATION
  Report Type: Spontaneous
  Country: US (occurrence: US)
  Receive Date: 20130612
  Receipt Date: 20130612
  Transmission Date: 20140414
  Serious: Yes (Other)
  Sender: FDA-Public Use
  Company Number: US-ROCHE-1234423

PATIENT
  Sex: Male

DRUGS (2)
  1. XOLAIR [Suspect]
     Indication: ASTHMA
     Route: 058
  2. PREDNISONE [Concomitant]
     Indication: ASTHMA

REACTIONS (2)
  - Bleeding varicose vein [Not Recovered/Not Resolved]
  - Varicose vein ruptured [Recovered/Resolved]
